FAERS Safety Report 5670032-4 (Version None)
Quarter: 2008Q1

REPORT INFORMATION
  Report Type: 
  Country: None (occurrence: None)
  Receive Date: 20080312
  Receipt Date: 20080225
  Transmission Date: 20080703
  Serious: Yes (Other)
  Sender: FDA-Public Use
  Company Number: 8030258

PATIENT

DRUGS (1)
  1. KEPPRA [Suspect]
     Dosage: 500 MG 2/D TRP
     Dates: end: 20071101

REACTIONS (3)
  - ARRHYTHMIA [None]
  - CONVULSION [None]
  - DRUG EXPOSURE DURING PREGNANCY [None]
